FAERS Safety Report 13361100 (Version 6)
Quarter: 2017Q3

REPORT INFORMATION
  Report Type: Report from Study
  Country: US (occurrence: US)
  Receive Date: 20170322
  Receipt Date: 20170804
  Transmission Date: 20171127
  Serious: Yes (Hospitalization, Other)
  Sender: FDA-Public Use
  Company Number: US-EXELIXIS-CABO-17008333

PATIENT
  Age: 60 Year
  Sex: Female

DRUGS (20)
  1. BIOTIN [Concomitant]
     Active Substance: BIOTIN
  2. AMITRIPTYLINE [Concomitant]
     Active Substance: AMITRIPTYLINE
  3. ONDANSETRON [Concomitant]
     Active Substance: ONDANSETRON
  4. REQUIP [Concomitant]
     Active Substance: ROPINIROLE HYDROCHLORIDE
  5. CABOMETYX [Suspect]
     Active Substance: CABOZANTINIB S-MALATE
     Indication: RENAL CANCER
     Dosage: 60 MG, QD
     Route: 048
     Dates: start: 20170128, end: 2017
  6. ALPRAZOLAM. [Concomitant]
     Active Substance: ALPRAZOLAM
  7. OXYCODONE [Concomitant]
     Active Substance: OXYCODONE
  8. AMITIZA [Concomitant]
     Active Substance: LUBIPROSTONE
  9. AMLODIPINE [Concomitant]
     Active Substance: AMLODIPINE BESYLATE
  10. ROPINIROLE HCL [Concomitant]
     Active Substance: ROPINIROLE HYDROCHLORIDE
  11. MAGNESIUM [Concomitant]
     Active Substance: MAGNESIUM
  12. MONTELUKAST SODIUM. [Concomitant]
     Active Substance: MONTELUKAST SODIUM
  13. CABOMETYX [Suspect]
     Active Substance: CABOZANTINIB S-MALATE
     Indication: METASTASES TO BONE
  14. DIPHENHYDRAMINE. [Concomitant]
     Active Substance: DIPHENHYDRAMINE
  15. SERTRALINE HCL [Concomitant]
     Active Substance: SERTRALINE HYDROCHLORIDE
  16. TOVIAZ [Concomitant]
     Active Substance: FESOTERODINE FUMARATE
  17. CABOMETYX [Suspect]
     Active Substance: CABOZANTINIB S-MALATE
     Indication: METASTASES TO LUNG
     Dosage: 40 MG, QD
     Route: 048
     Dates: start: 20170225, end: 20170316
  18. PERCOCET [Concomitant]
     Active Substance: ACETAMINOPHEN\OXYCODONE HYDROCHLORIDE
  19. ESOMEPRAZOLE [Concomitant]
     Active Substance: ESOMEPRAZOLE
  20. WARFARIN [Concomitant]
     Active Substance: WARFARIN

REACTIONS (19)
  - Pulmonary embolism [Recovering/Resolving]
  - Diarrhoea [Unknown]
  - Deep vein thrombosis [Unknown]
  - Tremor [Unknown]
  - Glossitis [Unknown]
  - Flatulence [Unknown]
  - Abdominal pain [Recovered/Resolved]
  - Hyperkeratosis [Unknown]
  - Intussusception [Recovered/Resolved]
  - Oral pain [Unknown]
  - Feeling hot [Not Recovered/Not Resolved]
  - Poor quality sleep [Unknown]
  - Dizziness [Not Recovered/Not Resolved]
  - Loss of consciousness [Recovered/Resolved]
  - Feeling abnormal [Unknown]
  - Night sweats [Unknown]
  - Constipation [Not Recovered/Not Resolved]
  - Glossodynia [Unknown]
  - Tinnitus [Unknown]

NARRATIVE: CASE EVENT DATE: 20170221
